FAERS Safety Report 10507424 (Version 1)
Quarter: 2014Q4

REPORT INFORMATION
  Report Type: Spontaneous
  Country: US (occurrence: US)
  Receive Date: 20141009
  Receipt Date: 20141009
  Transmission Date: 20150528
  Serious: Yes (Death)
  Sender: FDA-Public Use
  Company Number: US-PFIZER INC-2014272473

PATIENT
  Sex: Female
  Weight: 1.58 kg

DRUGS (12)
  1. OXACILLIN [Concomitant]
     Active Substance: OXACILLIN SODIUM
     Indication: STAPHYLOCOCCAL INFECTION
  2. INSULIN [Concomitant]
     Active Substance: INSULIN NOS
     Indication: DIABETES MELLITUS MANAGEMENT
  3. DOPAMINE [Concomitant]
     Active Substance: DOPAMINE\DOPAMINE HYDROCHLORIDE
     Indication: RENAL DISORDER
  4. FLUCONAZOLE. [Suspect]
     Active Substance: FLUCONAZOLE
     Indication: CANDIDA INFECTION
     Dosage: 10 G PER KG ONCE DAILY
     Route: 042
  5. N-ACETYLCYSTEINE [Concomitant]
     Active Substance: ACETYLCYSTEINE
     Indication: HAEMOCHROMATOSIS
  6. FLUCONAZOLE. [Suspect]
     Active Substance: FLUCONAZOLE
     Indication: URINARY TRACT INFECTION NEONATAL
     Dosage: LOADING DOSE
  7. FUROSEMIDE. [Concomitant]
     Active Substance: FUROSEMIDE
  8. DEFEROXAMINE [Concomitant]
     Active Substance: DEFEROXAMINE\DEFEROXAMINE MESYLATE
     Indication: HAEMOCHROMATOSIS
     Dosage: UNK
  9. NYSTATIN. [Concomitant]
     Active Substance: NYSTATIN
     Route: 061
  10. IMMUNOGLOBULINS [Concomitant]
     Active Substance: HUMAN IMMUNOGLOBULIN G
     Indication: HAEMOCHROMATOSIS
     Dosage: 1 G PER KG
     Route: 042
  11. ALBUMIN HUMAN [Concomitant]
     Active Substance: ALBUMIN (HUMAN)
  12. VITAMIN E [Concomitant]
     Active Substance: .ALPHA.-TOCOPHEROL
     Indication: HAEMOCHROMATOSIS

REACTIONS (1)
  - Toxic epidermal necrolysis [Fatal]
